FAERS Safety Report 16606380 (Version 3)
Quarter: 2019Q4

REPORT INFORMATION
  Report Type: Spontaneous
  Country: US (occurrence: US)
  Receive Date: 20190722
  Receipt Date: 20191010
  Transmission Date: 20200122
  Serious: No
  Sender: FDA-Public Use
  Company Number: US-HETERO-HET2019US00951

PATIENT
  Sex: Male

DRUGS (1)
  1. SILDENAFIL. [Suspect]
     Active Substance: SILDENAFIL
     Indication: ERECTILE DYSFUNCTION
     Dosage: 50 MG (ONE DOSAGE FORM)
     Route: 048

REACTIONS (2)
  - Drug ineffective [Unknown]
  - Treatment noncompliance [Unknown]
